FAERS Safety Report 6511980-2 (Version None)
Quarter: 2009Q4

REPORT INFORMATION
  Report Type: 
  Country: None (occurrence: None)
  Receive Date: 20091222
  Receipt Date: 20090512
  Transmission Date: 20100525
  Serious: No
  Sender: FDA-Public Use
  Company Number: US-ASTRAZENECA-2009UW12239

PATIENT
  Age: 21427 Day
  Sex: Female
  Weight: 59.9 kg

DRUGS (13)
  1. CRESTOR [Suspect]
     Indication: BLOOD CHOLESTEROL INCREASED
     Route: 048
     Dates: start: 20090508
  2. PREVACID [Concomitant]
  3. ZANTAC [Concomitant]
  4. ACECOL [Concomitant]
  5. SYMBALTA [Concomitant]
  6. WELLBUTRIN [Concomitant]
  7. FOLIC ACID [Concomitant]
  8. DIFLUCAN [Concomitant]
  9. SANNAFLEX [Concomitant]
  10. LYRICA [Concomitant]
  11. COLASE [Concomitant]
  12. VICODIN [Concomitant]
  13. CRYSTALLINE VIT B12 INJ [Concomitant]

REACTIONS (1)
  - CHROMATURIA [None]
